FAERS Safety Report 23542778 (Version 1)
Quarter: 2024Q1

REPORT INFORMATION
  Report Type: Spontaneous
  Country: US (occurrence: US)
  Receive Date: 20240220
  Receipt Date: 20240220
  Transmission Date: 20240409
  Serious: Yes (Hospitalization, Other)
  Sender: FDA-Public Use
  Company Number: US-BIOGEN-2024BI01251126

PATIENT
  Age: 22 Year
  Sex: Male

DRUGS (1)
  1. SKYCLARYS [Suspect]
     Active Substance: OMAVELOXOLONE
     Indication: Friedreich^s ataxia
     Route: 050
     Dates: start: 20230830, end: 20230930

REACTIONS (6)
  - Haemorrhoidal haemorrhage [Unknown]
  - Hepatic cirrhosis [Unknown]
  - Defaecation urgency [Unknown]
  - Hypertension [Unknown]
  - Decreased appetite [Unknown]
  - Abdominal pain upper [Unknown]
